FAERS Safety Report 17823405 (Version 1)
Quarter: 2020Q2

REPORT INFORMATION
  Report Type: Spontaneous
  Country: CA (occurrence: CA)
  Receive Date: 20200526
  Receipt Date: 20200526
  Transmission Date: 20200714
  Serious: Yes (Death, Other)
  Sender: FDA-Public Use
  Company Number: CA-TEVA-2020-CA-1238804

PATIENT
  Age: 54 Year
  Sex: Female

DRUGS (5)
  1. AVASTIN [Suspect]
     Active Substance: BEVACIZUMAB
     Indication: BRAIN NEOPLASM MALIGNANT
     Route: 042
  2. PROCARBAZINE [Concomitant]
     Active Substance: PROCARBAZINE
  3. SYNTHROID [Concomitant]
     Active Substance: LEVOTHYROXINE SODIUM
  4. ETOPOSIDE. [Suspect]
     Active Substance: ETOPOSIDE
     Indication: PRODUCT USED FOR UNKNOWN INDICATION
     Route: 065
  5. DILANTIN [Concomitant]
     Active Substance: PHENYTOIN

REACTIONS (5)
  - Terminal state [Fatal]
  - Body temperature increased [Fatal]
  - Mobility decreased [Fatal]
  - Swelling [Fatal]
  - Somnolence [Fatal]
